FAERS Safety Report 8591661-4 (Version None)
Quarter: 2012Q3

REPORT INFORMATION
  Report Type: 
  Country: None (occurrence: None)
  Receive Date: 20120814
  Receipt Date: 20120806
  Transmission Date: 20120928
  Serious: Yes (Hospitalization)
  Sender: FDA-Public Use
  Company Number: US-BAYER-2011-091132

PATIENT
  Age: 28 Year
  Sex: Female
  Weight: 67.12 kg

DRUGS (7)
  1. YAZ [Suspect]
     Indication: CONTRACEPTION
     Dosage: UNK
     Dates: start: 20091101
  2. TRAZODONE HYDROCHLORIDE [Concomitant]
     Dosage: 150 MG, UNK
  3. HYDROXYZINE PAMOATE [Concomitant]
     Dosage: 50 MG, UNK
  4. CLONAZEPAM [Concomitant]
     Dosage: 1 MG, UNK
  5. DROSPIRENONE AND ETHINYL ESTRADIOL [Suspect]
     Indication: CONTRACEPTION
     Dosage: UNK
     Dates: start: 20090801, end: 20100901
  6. PAROXETINE HCL [Concomitant]
     Dosage: 20 MG, UNK
  7. SENNA-GEN [Concomitant]

REACTIONS (7)
  - PULMONARY EMBOLISM [None]
  - PAIN [None]
  - EMOTIONAL DISTRESS [None]
  - ANXIETY [None]
  - PSYCHOLOGICAL TRAUMA [None]
  - POST-TRAUMATIC STRESS DISORDER [None]
  - INJURY [None]
